FAERS Safety Report 9316803 (Version 1)
Quarter: 2012Q4

REPORT INFORMATION
  Report Type: Spontaneous
  Country: BE (occurrence: None)
  Receive Date: 20121213
  Receipt Date: 20121213
  Transmission Date: 20130627
  Serious: Yes (Hospitalization, Other)
  Sender: FDA-Public Use
  Company Number: AUR-APL-2012-04890

PATIENT
  Age: 43 Year
  Sex: Male

DRUGS (6)
  1. TOPIRAMATE [Suspect]
     Indication: ENCEPHALOPATHY
     Dosage: STOPPED
  2. TOPIRAMATE [Suspect]
     Indication: EPILEPSY
     Dosage: STOPPED
  3. OXCARBAZEPINE (OXCARBAZEPINE) TABLET, 300MG [Suspect]
     Indication: ENCEPHALOPATHY
  4. OXCARBAZEPINE (OXCARBAZEPINE) TABLET, 300MG [Suspect]
     Indication: EPILEPSY
  5. VALPROIC ACID [Suspect]
     Indication: ENCEPHALOPATHY
  6. VALPROIC ACID [Suspect]
     Indication: EPILEPSY

REACTIONS (3)
  - Hypothermia [None]
  - Gait disturbance [None]
  - Altered state of consciousness [None]
